FAERS Safety Report 19694327 (Version 2)
Quarter: 2021Q3

REPORT INFORMATION
  Report Type: Spontaneous
  Country: US (occurrence: US)
  Receive Date: 20210812
  Receipt Date: 20210817
  Transmission Date: 20211014
  Serious: Yes (Hospitalization)
  Sender: FDA-Public Use
  Company Number: US-TEVA-2021-US-1940373

PATIENT
  Age: 58 Year
  Sex: Male

DRUGS (4)
  1. VITAMIN K [Concomitant]
     Active Substance: PHYTONADIONE
     Indication: PROCOAGULANT THERAPY
     Route: 042
  2. WARFARIN [Suspect]
     Active Substance: WARFARIN
     Indication: ANTICOAGULANT THERAPY
     Route: 065
  3. LISINOPRIL. [Concomitant]
     Active Substance: LISINOPRIL
     Indication: HYPERTENSION
     Route: 065
  4. WARFARIN [Suspect]
     Active Substance: WARFARIN
     Indication: DEEP VEIN THROMBOSIS

REACTIONS (1)
  - Hepatic haematoma [Unknown]
